FAERS Safety Report 8445088-6 (Version None)
Quarter: 2012Q2

REPORT INFORMATION
  Report Type: 
  Country: None (occurrence: None)
  Receive Date: 20120618
  Receipt Date: 20120613
  Transmission Date: 20120825
  Serious: Yes (Death)
  Sender: FDA-Public Use
  Company Number: RO-ABBOTT-12P-135-0945503-00

PATIENT
  Sex: Male
  Weight: 60 kg

DRUGS (11)
  1. CONCOR [Concomitant]
     Indication: HYPERTENSION
     Route: 048
     Dates: start: 20100101
  2. TANAKAN [Concomitant]
     Indication: PROPHYLAXIS
  3. ZEMPLAR [Suspect]
     Indication: HYPERPARATHYROIDISM SECONDARY
     Dosage: 1 MCG X 3/WEEK
     Route: 048
     Dates: start: 20110228
  4. IRBESARTAN [Concomitant]
     Indication: HYPERTENSION
     Route: 048
     Dates: start: 20100201
  5. ASPENTER [Concomitant]
     Indication: ANGINA PECTORIS
     Route: 048
     Dates: start: 20100201
  6. CRESTOR [Concomitant]
     Indication: PROPHYLAXIS
  7. SERMION [Concomitant]
     Indication: PRODUCT USED FOR UNKNOWN INDICATION
     Route: 065
  8. CARBAMAZEPINE [Concomitant]
     Indication: PRODUCT USED FOR UNKNOWN INDICATION
     Route: 065
  9. ASPENTER [Concomitant]
     Indication: PROPHYLAXIS
  10. CRESTOR [Concomitant]
     Indication: DYSLIPIDAEMIA
     Route: 048
     Dates: start: 20090101
  11. TANAKAN [Concomitant]
     Indication: CARDIOVASCULAR INSUFFICIENCY
     Route: 048
     Dates: start: 20090101

REACTIONS (1)
  - CARDIAC ARREST [None]
